FAERS Safety Report 9155742 (Version 1)
Quarter: 2013Q1

REPORT INFORMATION
  Report Type: Spontaneous
  Country: DK (occurrence: IT)
  Receive Date: 20130311
  Receipt Date: 20130311
  Transmission Date: 20140127
  Serious: Yes (Hospitalization)
  Sender: FDA-Public Use
  Company Number: IT-FRI-1000043247

PATIENT
  Age: 20 Year
  Sex: Male

DRUGS (3)
  1. ESCITALOPRAM ORAL SOLUTION [Suspect]
     Indication: DEPRESSION
     Dosage: 10 DF
     Route: 048
     Dates: start: 20090101, end: 20120923
  2. MINIAS [Suspect]
     Indication: DEPRESSION
     Route: 048
     Dates: start: 20090101, end: 20120923
  3. VALIUM [Suspect]
     Indication: DEPRESSION
     Route: 048
     Dates: start: 20090101, end: 20120923

REACTIONS (2)
  - Suicide attempt [Recovered/Resolved]
  - Toxicity to various agents [Recovered/Resolved]
